FAERS Safety Report 5046657-6 (Version None)
Quarter: 2006Q3

REPORT INFORMATION
  Report Type: 
  Country: None (occurrence: None)
  Receive Date: 20060707
  Receipt Date: 20060707
  Transmission Date: 20061208
  Serious: Yes (Hospitalization)
  Sender: FDA-Public Use
  Company Number: None

PATIENT
  Age: 75 Year
  Sex: Male

DRUGS (8)
  1. ATENOLOL [Suspect]
     Indication: HYPERTENSION
     Dosage: 25GM PO BID
     Route: 048
     Dates: start: 20060505, end: 20060512
  2. FELODIPINE [Suspect]
     Indication: HYPERTENSION
     Dosage: 10MG PO BID
     Route: 048
     Dates: start: 20050223, end: 20060512
  3. ASPIRIN [Concomitant]
  4. FOSINOPRIL SODIUM [Concomitant]
  5. LASIX [Concomitant]
  6. MINOXIDIL [Concomitant]
  7. ATENOLOL [Concomitant]
  8. ARICEPT [Concomitant]

REACTIONS (1)
  - BRADYCARDIA [None]
